FAERS Safety Report 8588411 (Version 2)
Quarter: 2014Q1

REPORT INFORMATION
  Report Type: Spontaneous
  Country: ES (occurrence: ES)
  Receive Date: 20120531
  Receipt Date: 20140303
  Transmission Date: 20141002
  Serious: Yes (Other)
  Sender: FDA-Public Use
  Company Number: ES-JNJFOC-20120516942

PATIENT
  Sex: 0

DRUGS (2)
  1. REMICADE [Suspect]
     Indication: UVEITIS
     Dosage: DOSING INTERVAL : 4 TO 8 WEEKS
     Route: 042
  2. ADALIMUMAB [Suspect]
     Indication: UVEITIS
     Dosage: DOSING INTERVAL : 4 TO 8 WEEKS
     Route: 058

REACTIONS (2)
  - Disseminated tuberculosis [Unknown]
  - Off label use [Unknown]
